FAERS Safety Report 5579216-7 (Version None)
Quarter: 2008Q1

REPORT INFORMATION
  Report Type: 
  Country: None (occurrence: None)
  Receive Date: 20080102
  Receipt Date: 20071219
  Transmission Date: 20080703
  Serious: Yes (Hospitalization)
  Sender: FDA-Public Use
  Company Number: US-ELI_LILLY_AND_COMPANY-US200712001705

PATIENT
  Sex: Female
  Weight: 56.235 kg

DRUGS (10)
  1. FORTEO [Suspect]
     Indication: OSTEOPOROSIS
     Dosage: 20 UG, DAILY (1/D)
     Dates: start: 20060201
  2. ATENOLOL [Concomitant]
     Dosage: 25 MG, EACH MORNING
  3. ATENOLOL [Concomitant]
     Dosage: 25 MG, EACH EVENING
  4. MULTI-VIT [Concomitant]
     Dosage: UNK, DAILY (1/D)
  5. CALCIUM W/VITAMIN D NOS [Concomitant]
  6. COUMADIN [Concomitant]
  7. PRILOSEC [Concomitant]
     Dosage: 20 UNK, DAILY (1/D)
  8. LASIX [Concomitant]
     Dosage: 40 UNK, DAILY (1/D)
  9. POTASSIUM CHLORIDE [Concomitant]
     Dosage: 10 MG, 3/D
  10. ULTRAM [Concomitant]
     Dosage: 100 UNK, DAILY (1/D)

REACTIONS (4)
  - BALANCE DISORDER [None]
  - FALL [None]
  - HEAD INJURY [None]
  - PARKINSON'S DISEASE [None]
